FAERS Safety Report 6500529-6 (Version None)
Quarter: 2009Q4

REPORT INFORMATION
  Report Type: 
  Country: None (occurrence: None)
  Receive Date: 20091216
  Receipt Date: 20091207
  Transmission Date: 20100525
  Serious: Yes (Hospitalization)
  Sender: FDA-Public Use
  Company Number: GXKR2009ES12754

PATIENT
  Age: 13 Year
  Sex: Male
  Weight: 90 kg

DRUGS (4)
  1. SALBUTAMOL (NGX) [Suspect]
     Indication: ASTHMA
     Dosage: 15 MG/H, IN THE FIRST HOUR
  2. SALBUTAMOL (NGX) [Suspect]
     Dosage: 5 MG, Q3H
  3. IPRATROPIUM BROMIDE [Concomitant]
     Indication: ASTHMA
     Dosage: 500 UG/HR, UNK
  4. METHYLPREDNISOLONE [Concomitant]
     Indication: ASTHMA
     Dosage: 60 MG, UNK
     Route: 042

REACTIONS (2)
  - LACTIC ACIDOSIS [None]
  - MECHANICAL VENTILATION [None]
